FAERS Safety Report 7817583-1 (Version None)
Quarter: 2011Q4

REPORT INFORMATION
  Report Type: 
  Country: None (occurrence: None)
  Receive Date: 20111017
  Receipt Date: 20111007
  Transmission Date: 20120403
  Serious: Yes (Other)
  Sender: FDA-Public Use
  Company Number: PHHY2011BR74753

PATIENT
  Sex: Female
  Weight: 157 kg

DRUGS (2)
  1. TRILEPTAL [Suspect]
     Indication: BIPOLAR DISORDER
     Dosage: HALF TABLET ON MORNING AND AT NIGHT
     Route: 048
     Dates: end: 20110818
  2. TRILEPTAL [Suspect]
     Dosage: HALF TABLET ON MORNING AND AT NIGHT
     Route: 048

REACTIONS (4)
  - PRURITUS GENERALISED [None]
  - PHLEBITIS [None]
  - WOUND [None]
  - CHROMATURIA [None]
